FAERS Safety Report 8414644-3 (Version None)
Quarter: 2012Q2

REPORT INFORMATION
  Report Type: 
  Country: None (occurrence: None)
  Receive Date: 20120605
  Receipt Date: 20120531
  Transmission Date: 20120825
  Serious: Yes (Other)
  Sender: FDA-Public Use
  Company Number: CA-ABBOTT-12P-028-0939668-00

PATIENT
  Sex: Female
  Weight: 102.15 kg

DRUGS (24)
  1. FOLIC ACID [Concomitant]
     Indication: ADVERSE DRUG REACTION
     Route: 048
     Dates: start: 20090101
  2. ELAVIL [Concomitant]
     Indication: SLEEP DISORDER
     Route: 048
     Dates: start: 20010101
  3. NOVO-PREDNISONE [Concomitant]
     Indication: ARTHRITIS
  4. HUMIRA [Suspect]
     Indication: RHEUMATOID ARTHRITIS
     Route: 058
     Dates: start: 20111006, end: 20120523
  5. RANIDINE [Concomitant]
     Indication: GASTROOESOPHAGEAL REFLUX DISEASE
     Route: 048
     Dates: start: 20010101
  6. CELEXA [Concomitant]
     Indication: ANXIETY
     Route: 048
     Dates: start: 20010101
  7. CALCIUM WITH VITAMIN D [Concomitant]
     Indication: OSTEOARTHRITIS
     Dosage: UNIT DOSE 400/600 MG. DAILY: 800/1200MG 2 IN 1 DAY
     Route: 048
     Dates: start: 20010101
  8. METHOTREXATE [Concomitant]
     Indication: SCLERODERMA
     Route: 058
     Dates: start: 20090101
  9. INDAPAMIDE [Concomitant]
     Indication: FLUID RETENTION
     Route: 048
     Dates: start: 20010101
  10. ASPIRIN [Concomitant]
     Indication: HEART RATE INCREASED
     Route: 048
     Dates: start: 20110701
  11. DOCUSATE CALCIUM [Concomitant]
     Indication: IRRITABLE BOWEL SYNDROME
     Route: 048
     Dates: start: 20010101
  12. BISOPROLOL FUMARATE [Concomitant]
     Indication: HEART RATE INCREASED
     Route: 048
     Dates: start: 20110701
  13. ATIVAN [Concomitant]
     Indication: ANXIETY
     Route: 048
     Dates: start: 20010101
  14. SANDOZ TELMISARTAN [Concomitant]
     Indication: HYPERTENSION
     Route: 048
     Dates: start: 20070101
  15. NEXIUM [Concomitant]
     Indication: GASTROOESOPHAGEAL REFLUX DISEASE
     Route: 048
     Dates: start: 20010101
  16. APO METOCLOPRAMIDE [Concomitant]
     Indication: HYPERTENSION
     Dates: start: 20070101
  17. CALCIUM WITH VITAMIN D [Concomitant]
     Indication: ARTHRITIS
  18. NOVO-PREDNISONE [Concomitant]
     Indication: OSTEOARTHRITIS
     Route: 048
     Dates: start: 20000101
  19. VARENICLINE TARTRATE [Concomitant]
     Indication: SMOKING CESSATION THERAPY
     Route: 048
     Dates: start: 20120301
  20. HYDROXYCHLOROQUINE SULFATE [Concomitant]
     Indication: RHEUMATOID ARTHRITIS
     Route: 048
     Dates: start: 20090101
  21. VITAMIN D [Concomitant]
     Indication: ARTHRITIS
  22. ZOLEDRONOC ACID [Concomitant]
     Indication: OSTEOPOROSIS
     Dosage: YEARLY
     Route: 042
     Dates: start: 20080101
  23. VITAMIN D [Concomitant]
     Indication: OSTEOARTHRITIS
     Route: 048
     Dates: start: 20110101
  24. NITRO PUMP [Concomitant]
     Indication: GASTROINTESTINAL DISORDER
     Route: 055
     Dates: start: 20010101

REACTIONS (4)
  - OSTEOARTHRITIS [None]
  - POOR QUALITY SLEEP [None]
  - LIGAMENT DISORDER [None]
  - PAIN IN EXTREMITY [None]
